FAERS Safety Report 4559508-0 (Version None)
Quarter: 2005Q1

REPORT INFORMATION
  Report Type: 
  Country: None (occurrence: None)
  Receive Date: 20050124
  Receipt Date: 20030102
  Transmission Date: 20050727
  Serious: Yes (Hospitalization)
  Sender: FDA-Public Use
  Company Number: US-GLAXOSMITHKLINE-A0391165A

PATIENT
  Sex: Female

DRUGS (11)
  1. PAXIL [Suspect]
     Indication: DEPRESSION
     Dosage: 60MG PER DAY
     Route: 048
     Dates: start: 19940101
  2. RISPERDAL [Concomitant]
  3. ADDERALL 5 [Concomitant]
  4. WELLBUTRIN [Concomitant]
  5. ZESTRIL [Concomitant]
  6. PREMPRO [Concomitant]
  7. UNKNOWN MEDICATION [Concomitant]
  8. PRANDIN [Concomitant]
  9. LIPITOR [Concomitant]
  10. PRILOSEC [Concomitant]
  11. FOSAMAX [Concomitant]

REACTIONS (18)
  - ABDOMINAL PAIN [None]
  - AGGRESSION [None]
  - AGITATION [None]
  - ANGER [None]
  - ANXIETY [None]
  - ASTHENIA [None]
  - CONFUSIONAL STATE [None]
  - CRYING [None]
  - DISTURBANCE IN ATTENTION [None]
  - DIZZINESS [None]
  - DRUG WITHDRAWAL SYNDROME [None]
  - FATIGUE [None]
  - HYPERHIDROSIS [None]
  - INFLUENZA [None]
  - MEMORY IMPAIRMENT [None]
  - NERVOUSNESS [None]
  - PARAESTHESIA [None]
  - TREMOR [None]
